FAERS Safety Report 12413392 (Version 1)
Quarter: 2016Q2

REPORT INFORMATION
  Report Type: Other
  Country: DE (occurrence: DE)
  Receive Date: 20160527
  Receipt Date: 20160527
  Transmission Date: 20160815
  Serious: Yes (Life-Threatening, Hospitalization)
  Sender: FDA-Public Use
  Company Number: DE-MYLANLABS-2016M1021463

PATIENT

DRUGS (6)
  1. METFORMIN [Suspect]
     Active Substance: METFORMIN HYDROCHLORIDE
     Indication: TYPE 2 DIABETES MELLITUS
     Dosage: 500 MG, BID (DAILY DOSE: 1000 MG MILLGRAM(S) EVERY DAYS)
     Route: 048
     Dates: end: 20141121
  2. SIMVASTATIN. [Concomitant]
     Active Substance: SIMVASTATIN
     Dosage: 20 MG, QD (DAILY DOSE: 20 MG MILLGRAM(S) EVERY DAYS)
     Route: 048
  3. ASPIRIN. [Concomitant]
     Active Substance: ASPIRIN
     Dosage: 100 MG, QD (DAILY DOSE: 100 MG MILLGRAM(S) EVERY DAYS)
     Route: 048
  4. GLIMEPIRID [Concomitant]
     Active Substance: GLIMEPIRIDE
     Dosage: 2 MG, QD (DAILY DOSE: 2 MG MILLGRAM(S) EVERY DAYS)
     Route: 048
  5. ENALAPRIL [Concomitant]
     Active Substance: ENALAPRIL
     Dosage: 5 MG, BID (DAILY DOSE: 10 MG MILLGRAM(S) EVERY DAYS)
     Route: 048
  6. AMITRIPTYLIN [Concomitant]
     Active Substance: AMITRIPTYLINE
     Dosage: 25 MG, QD (DAILY DOSE: 25 MG MILLGRAM(S) EVERY DAYS)
     Route: 048

REACTIONS (2)
  - Hyperkalaemia [Recovered/Resolved]
  - Lactic acidosis [Recovered/Resolved]

NARRATIVE: CASE EVENT DATE: 20141122
